FAERS Safety Report 6290321-2 (Version None)
Quarter: 2009Q3

REPORT INFORMATION
  Report Type: 
  Country: None (occurrence: None)
  Receive Date: 20090730
  Receipt Date: 20090220
  Transmission Date: 20100115
  Serious: No
  Sender: FDA-Public Use
  Company Number: US-BRISTOL-MYERS SQUIBB COMPANY-14518740

PATIENT
  Age: 86 Year
  Sex: Male

DRUGS (3)
  1. COUMADIN [Suspect]
     Route: 065
  2. PLAVIX [Suspect]
     Indication: CAROTID ENDARTERECTOMY
     Route: 048
     Dates: start: 20071201
  3. ASPIRIN [Suspect]
     Route: 065

REACTIONS (5)
  - BLOOD COUNT ABNORMAL [None]
  - EPISTAXIS [None]
  - EYE SWELLING [None]
  - FEELING COLD [None]
  - LACRIMATION INCREASED [None]
